FAERS Safety Report 23527165 (Version 2)
Quarter: 2024Q3

REPORT INFORMATION
  Report Type: Spontaneous
  Country: JP (occurrence: None)
  Receive Date: 20240215
  Receipt Date: 20240830
  Transmission Date: 20241017
  Serious: Yes (Hospitalization)
  Sender: ASTRAZENECA
  Company Number: 2024A034541

PATIENT
  Age: 84 Year
  Sex: Male

DRUGS (13)
  1. DAPAGLIFLOZIN [Suspect]
     Active Substance: DAPAGLIFLOZIN
     Indication: Cardiac failure chronic
     Dosage: IN THE MORNING
     Route: 048
     Dates: start: 20191120, end: 20240130
  2. LIVALO [Concomitant]
     Active Substance: PITAVASTATIN CALCIUM
     Dosage: IN THE MORNING
     Route: 048
  3. BISOPROLOL FUMARATE [Concomitant]
     Active Substance: BISOPROLOL FUMARATE
     Dosage: IN THE MORNING
     Route: 048
  4. AMLODIPINE BESYLATE [Concomitant]
     Active Substance: AMLODIPINE BESYLATE
     Dosage: IN THE MORNING
     Route: 048
  5. HARNAL [Concomitant]
     Active Substance: TAMSULOSIN HYDROCHLORIDE
     Dosage: IN THE MORNING
     Route: 048
  6. CILOSTAZOL [Concomitant]
     Active Substance: CILOSTAZOL
     Dosage: AFTER BREAKFAST AND EVENING MEAL
     Route: 048
  7. ELIQUIS [Concomitant]
     Active Substance: APIXABAN
     Dosage: AFTER BREAKFAST AND EVENING MEAL
     Route: 048
  8. METHYLCOBALAMIN [Concomitant]
     Active Substance: METHYLCOBALAMIN
     Dosage: AFTER BREAKFAST AND EVENING MEAL
     Route: 048
  9. TOCOPHERYL NICOTINATE, D-.ALPHA. [Concomitant]
     Active Substance: TOCOPHERYL NICOTINATE, D-.ALPHA.
     Dosage: AFTER BREAKFAST AND EVENING MEAL
     Route: 048
  10. MAGNESIUM OXIDE [Concomitant]
     Active Substance: MAGNESIUM OXIDE
     Dosage: AFTER BREAKFAST AND EVENING MEAL
     Route: 048
  11. NICORANDIL [Concomitant]
     Active Substance: NICORANDIL
     Dosage: AFTER BREAKFAST AND EVENING MEAL
     Route: 048
  12. ENALAPRIL [Concomitant]
     Active Substance: ENALAPRIL
     Dosage: IN THE MORNING
     Route: 048
  13. DIART [Concomitant]
     Dosage: IN THE MORNING
     Route: 048

REACTIONS (1)
  - Cardiac failure [Unknown]

NARRATIVE: CASE EVENT DATE: 20230901
